FAERS Safety Report 8543021-X (Version None)
Quarter: 2012Q3

REPORT INFORMATION
  Report Type: 
  Country: None (occurrence: None)
  Receive Date: 20120727
  Receipt Date: 20120717
  Transmission Date: 20120928
  Serious: Yes (Other)
  Sender: FDA-Public Use
  Company Number: US-JNJFOC-20120518417

PATIENT
  Sex: Male
  Weight: 102.06 kg

DRUGS (8)
  1. METHOTREXATE [Suspect]
     Dosage: 15-20 MG
     Route: 048
     Dates: start: 20081027
  2. REMICADE [Suspect]
     Indication: RHEUMATOID ARTHRITIS
     Route: 042
     Dates: start: 20090909, end: 20120329
  3. OMEPRAZOLE [Concomitant]
     Indication: GASTROOESOPHAGEAL REFLUX DISEASE
     Route: 065
  4. METHOTREXATE [Suspect]
     Indication: PRODUCT USED FOR UNKNOWN INDICATION
     Route: 048
     Dates: end: 20120301
  5. METOPROLOL SUCCINATE [Concomitant]
     Indication: HYPERTENSION
     Route: 065
  6. METHOTREXATE [Suspect]
     Dosage: 15-20 MG
     Route: 048
     Dates: start: 20080701
  7. PREDNISONE [Concomitant]
     Route: 048
  8. CRESTOR [Concomitant]
     Indication: LIPIDS INCREASED
     Route: 048

REACTIONS (1)
  - B-CELL LYMPHOMA [None]
